FAERS Safety Report 8051799-7 (Version None)
Quarter: 2012Q1

REPORT INFORMATION
  Report Type: 
  Country: None (occurrence: None)
  Receive Date: 20120118
  Receipt Date: 20120109
  Transmission Date: 20120608
  Serious: Yes (Hospitalization, Other)
  Sender: FDA-Public Use
  Company Number: JP-ACCORD-012011

PATIENT
  Age: 41 Year
  Sex: Male

DRUGS (5)
  1. GEMCITABINE [Suspect]
     Indication: NON-SMALL CELL LUNG CANCER
  2. BENIDIPINE [Concomitant]
  3. CISPLATIN [Suspect]
     Indication: NON-SMALL CELL LUNG CANCER
  4. RABEPRAZOLE SODIUM [Concomitant]
  5. CARBOCISTEINE LYSINE [Concomitant]

REACTIONS (7)
  - ACUTE MYOCARDIAL INFARCTION [None]
  - LEUKOCYTOSIS [None]
  - OFF LABEL USE [None]
  - CORONARY ARTERY THROMBOSIS [None]
  - RENAL IMPAIRMENT [None]
  - ANAEMIA [None]
  - EXTREMITY NECROSIS [None]
